FAERS Safety Report 6890804-8 (Version None)
Quarter: 2010Q3

REPORT INFORMATION
  Report Type: 
  Country: None (occurrence: None)
  Receive Date: 20100731
  Receipt Date: 20090324
  Transmission Date: 20110219
  Serious: No
  Sender: FDA-Public Use
  Company Number: US-PFIZER INC-2008150962

PATIENT
  Sex: Female
  Weight: 69.841 kg

DRUGS (15)
  1. LIPITOR [Suspect]
     Indication: BLOOD CHOLESTEROL ABNORMAL
     Dosage: 10 MG, 1X/DAY
  2. COREG [Suspect]
     Dosage: 3.125 MG, 2X/DAY
  3. ENALAPRIL MALEATE [Suspect]
     Dosage: 5 MG, 1X/DAY
  4. TRICOR [Suspect]
  5. PLAVIX [Concomitant]
     Dosage: UNK
  6. ACTONEL [Concomitant]
     Dosage: UNK
  7. VITAMIN D [Concomitant]
     Dosage: UNK
  8. CALCIUM MAGNESIUM ZINC [Concomitant]
     Dosage: UNK
  9. POTASSIUM [Concomitant]
     Dosage: UNK
  10. MULTI-VITAMINS [Concomitant]
     Dosage: UNK
  11. CHONDROITIN/GLUCOSAMINE [Concomitant]
     Dosage: UNK
  12. UBIDECARENONE [Concomitant]
     Dosage: UNK
  13. DOCUSATE SODIUM [Concomitant]
     Dosage: UNK
  14. FERROUS GLUCONATE [Concomitant]
     Dosage: UNK
  15. ACETYLSALICYLIC ACID [Concomitant]
     Dosage: UNK

REACTIONS (9)
  - BODY HEIGHT DECREASED [None]
  - CHEST DISCOMFORT [None]
  - CONSTIPATION [None]
  - GAIT DISTURBANCE [None]
  - HEADACHE [None]
  - OESOPHAGEAL SPASM [None]
  - OSTEOPOROSIS [None]
  - UNEVALUABLE EVENT [None]
  - WEIGHT INCREASED [None]
